FAERS Safety Report 11995022 (Version 1)
Quarter: 2016Q1

REPORT INFORMATION
  Report Type: Spontaneous
  Country: US (occurrence: US)
  Receive Date: 20160203
  Receipt Date: 20160203
  Transmission Date: 20160526
  Serious: No
  Sender: FDA-Public Use
  Company Number: US-UCBSA-2015035795

PATIENT
  Sex: Female

DRUGS (2)
  1. KEPPRA XR [Suspect]
     Active Substance: LEVETIRACETAM
     Indication: SEIZURE
     Dosage: 500 MG/2 DAY, 2 TABLETS A DAY
     Dates: start: 2015, end: 2015
  2. KEPPRA XR [Suspect]
     Active Substance: LEVETIRACETAM
     Dosage: 1 TABLET A DAY
     Dates: start: 2015

REACTIONS (1)
  - Incorrect dose administered [Unknown]

NARRATIVE: CASE EVENT DATE: 2015
